FAERS Safety Report 4801227-7 (Version None)
Quarter: 2005Q4

REPORT INFORMATION
  Report Type: 
  Country: None (occurrence: None)
  Receive Date: 20051011
  Receipt Date: 20040812
  Transmission Date: 20060501
  Serious: Yes (Death, Other)
  Sender: FDA-Public Use
  Company Number: GBS040615126

PATIENT
  Age: 67 Year
  Sex: Female

DRUGS (2)
  1. FORTEO [Suspect]
     Indication: OSTEOPOROSIS
     Dosage: 20 UG DAY
     Dates: start: 20040115
  2. CALCICHEW (CALCIUM CARBONATE) [Concomitant]

REACTIONS (13)
  - ASTHENIA [None]
  - BONE FORMATION INCREASED [None]
  - IMMUNOGLOBULINS DECREASED [None]
  - INCREASED APPETITE [None]
  - LOCAL SWELLING [None]
  - LUNG INFECTION [None]
  - MALAISE [None]
  - METASTASIS [None]
  - MULTIPLE FRACTURES [None]
  - MUSCULOSKELETAL CHEST PAIN [None]
  - NECK PAIN [None]
  - PALLOR [None]
  - SHOULDER PAIN [None]
